FAERS Safety Report 18118599 (Version 1)
Quarter: 2020Q3

REPORT INFORMATION
  Report Type: Spontaneous
  Country: US (occurrence: US)
  Receive Date: 20200805
  Receipt Date: 20200805
  Transmission Date: 20201103
  Serious: No
  Sender: FDA-Public Use
  Company Number: None

PATIENT
  Age: 69 Year
  Sex: Female
  Weight: 89.81 kg

DRUGS (3)
  1. ORENCIA [Suspect]
     Active Substance: ABATACEPT
     Indication: RHEUMATOID ARTHRITIS
     Route: 058
     Dates: start: 201911
  2. ORENCIA [Suspect]
     Active Substance: ABATACEPT
     Indication: OSTEOARTHRITIS
     Route: 058
     Dates: start: 201911
  3. ORENCIA [Suspect]
     Active Substance: ABATACEPT
     Indication: DRY EYE
     Route: 058
     Dates: start: 201911

REACTIONS (2)
  - Urinary tract infection [None]
  - Therapy interrupted [None]
